FAERS Safety Report 5536341-4 (Version None)
Quarter: 2007Q4

REPORT INFORMATION
  Report Type: 
  Country: None (occurrence: None)
  Receive Date: 20071204
  Receipt Date: 20071119
  Transmission Date: 20080405
  Serious: Yes (Hospitalization)
  Sender: FDA-Public Use
  Company Number: 2007002276

PATIENT
  Age: 47 Year
  Sex: Female
  Weight: 76.2 kg

DRUGS (5)
  1. ERLOTINIB (ERLOTINIB HCL) (TABLET) (ERLOTINIB HCL) [Suspect]
     Indication: NON-SMALL CELL LUNG CANCER
     Dosage: (150 MG, QD), ORAL
     Route: 048
     Dates: start: 20070927
  2. BEVACIZUMAB (INJECTION FOR INFUSION) [Suspect]
     Indication: NON-SMALL CELL LUNG CANCER
     Dosage: (1110 MG, Q3W), INTRAVENOUS
     Route: 042
     Dates: start: 20070927
  3. CODEINE SUL TAB [Concomitant]
  4. ERLOTINIB (ERLOTINIB HCL) (TABLET) (ERLOTINIB HCL) [Suspect]
  5. BEVACIZUMAB (INJECTION FOR INFUSION) [Suspect]

REACTIONS (5)
  - ATELECTASIS [None]
  - CONDITION AGGRAVATED [None]
  - HAEMOPTYSIS [None]
  - PULMONARY HILUM MASS [None]
  - TRACHEAL MASS [None]
